FAERS Safety Report 4906451-0 (Version None)
Quarter: 2006Q1

REPORT INFORMATION
  Report Type: 
  Country: None (occurrence: None)
  Receive Date: 20060206
  Receipt Date: 20060123
  Transmission Date: 20060701
  Serious: No
  Sender: FDA-Public Use
  Company Number: 06H-161-0304760-00

PATIENT
  Sex: 0

DRUGS (5)
  1. SODIUM CHLORIDE 0.9% INJECTION, PRESERVATIVE-FREE (SODIUM CHLORIDE INJ [Suspect]
     Indication: SPINAL ANAESTHESIA
     Dosage: 1 ML, INTRATHECAL
     Route: 037
  2. 0.5% BUPIVACAINE INJECTION (BUPIVACAINE HYDROCHLORIDE INJECTION) (BUPI [Suspect]
     Indication: SPINAL ANAESTHESIA
     Dosage: 2 ML, INTRATHECAL
     Route: 037
  3. FENTANYL CITRATE [Suspect]
     Indication: SPINAL ANAESTHESIA
     Dosage: 0.5 ML, INTRATHECAL
     Route: 037
  4. DIAZEPAM [Concomitant]
  5. LACTATED FINGER'S SOLUTION (RINGER-LACTATE SOLUION ^FRESENIUS^) [Concomitant]

REACTIONS (2)
  - ANAESTHETIC COMPLICATION [None]
  - HYPOTENSION [None]
